FAERS Safety Report 4486369-0 (Version None)
Quarter: 2004Q4

REPORT INFORMATION
  Report Type: 
  Country: None (occurrence: None)
  Receive Date: 20041027
  Receipt Date: 20041015
  Transmission Date: 20050328
  Serious: Yes (Death)
  Sender: FDA-Public Use
  Company Number: US-JNJFOC-20041005437

PATIENT
  Age: 82 Year
  Sex: Female

DRUGS (1)
  1. REOPRO [Suspect]
     Indication: CARDIAC ARREST
     Route: 042

REACTIONS (2)
  - CARDIAC ARREST [None]
  - DEATH [None]
